FAERS Safety Report 7792407-X (Version None)
Quarter: 2011Q4

REPORT INFORMATION
  Report Type: 
  Country: None (occurrence: None)
  Receive Date: 20111003
  Receipt Date: 20110920
  Transmission Date: 20120403
  Serious: Yes (Other)
  Sender: FDA-Public Use
  Company Number: US-BAYER-2010-003295

PATIENT
  Age: 34 Year
  Sex: Female
  Weight: 89.796 kg

DRUGS (3)
  1. YASMIN [Suspect]
     Dosage: UNK
     Dates: start: 20030101, end: 20090401
  2. DROSPIRENONE AND ETHINYL ESTRADIOL [Suspect]
     Dosage: UNK
     Dates: start: 20030101, end: 20090401
  3. YAZ [Suspect]
     Dosage: UNK
     Dates: start: 20030101, end: 20090401

REACTIONS (4)
  - CHOLELITHIASIS [None]
  - VOMITING [None]
  - PAIN [None]
  - CHOLECYSTECTOMY [None]
